FAERS Safety Report 13681012 (Version 1)
Quarter: 2017Q2

REPORT INFORMATION
  Report Type: Spontaneous
  Country: FR (occurrence: FR)
  Receive Date: 20170623
  Receipt Date: 20170623
  Transmission Date: 20170830
  Serious: Yes (Hospitalization, Other)
  Sender: FDA-Public Use
  Company Number: FR-009507513-1706FRA007719

PATIENT
  Age: 48 Year
  Sex: Female

DRUGS (2)
  1. TEMODAL [Suspect]
     Active Substance: TEMOZOLOMIDE
     Indication: GLIOMA
     Dosage: 360 MG, QD
     Route: 048
     Dates: start: 20170423, end: 20170427
  2. TEMODAL [Suspect]
     Active Substance: TEMOZOLOMIDE
     Dosage: 270 MG, QD
     Route: 048
     Dates: start: 20170327, end: 20170331

REACTIONS (3)
  - Leukopenia [Recovering/Resolving]
  - Anaemia [Recovering/Resolving]
  - Aplasia [Recovering/Resolving]

NARRATIVE: CASE EVENT DATE: 20170510
